FAERS Safety Report 13637636 (Version 2)
Quarter: 2017Q2

REPORT INFORMATION
  Report Type: Spontaneous
  Country: JP (occurrence: JP)
  Receive Date: 20170609
  Receipt Date: 20170614
  Transmission Date: 20170830
  Serious: Yes (Other)
  Sender: FDA-Public Use
  Company Number: JP-PFIZER INC-2017241793

PATIENT

DRUGS (1)
  1. BENEFIX [Suspect]
     Active Substance: COAGULATION FACTOR IX RECOMBINANT HUMAN\ISOPROPYL ALCOHOL
     Indication: FACTOR IX DEFICIENCY
     Dosage: 3000 IU, UNK
     Route: 042

REACTIONS (3)
  - Haemorrhage [Unknown]
  - Ankle fracture [Unknown]
  - Accident [Unknown]

NARRATIVE: CASE EVENT DATE: 20170526
